FAERS Safety Report 9646580 (Version 1)
Quarter: 2013Q4

REPORT INFORMATION
  Report Type: Spontaneous
  Country: US (occurrence: US)
  Receive Date: 20131025
  Receipt Date: 20131025
  Transmission Date: 20140711
  Serious: Yes (Other)
  Sender: FDA-Public Use
  Company Number: US-ROCHE-1291482

PATIENT
  Sex: Male

DRUGS (1)
  1. VALIUM [Suspect]
     Indication: PRODUCT USED FOR UNKNOWN INDICATION
     Route: 065
     Dates: start: 2013

REACTIONS (5)
  - Surgery [Unknown]
  - Inflammation [Unknown]
  - Ejaculation failure [Unknown]
  - Swelling [Unknown]
  - Expired drug administered [Unknown]
